FAERS Safety Report 17911617 (Version 9)
Quarter: 2020Q3

REPORT INFORMATION
  Report Type: Spontaneous
  Country: US (occurrence: US)
  Receive Date: 20200618
  Receipt Date: 20200928
  Transmission Date: 20201103
  Serious: Yes (Other)
  Sender: FDA-Public Use
  Company Number: US-PFIZER INC-2020235213

PATIENT
  Age: 59 Year
  Sex: Female
  Weight: 93 kg

DRUGS (3)
  1. XGEVA [Concomitant]
     Active Substance: DENOSUMAB
     Dosage: UNK
  2. IBRANCE [Suspect]
     Active Substance: PALBOCICLIB
     Indication: BREAST CANCER METASTATIC
     Dosage: 125 MG, CYCLIC, (ONCE A DAY BY MOUTH FOR 21 DAYS ON AND 7 DAYS OFF)
     Route: 048
     Dates: start: 201804
  3. FULVESTRANT. [Suspect]
     Active Substance: FULVESTRANT
     Indication: BREAST CANCER METASTATIC
     Dosage: UNK

REACTIONS (18)
  - Muscular weakness [Unknown]
  - Feeling hot [Unknown]
  - Illness [Not Recovered/Not Resolved]
  - Tooth fracture [Unknown]
  - Weight increased [Unknown]
  - Mobility decreased [Unknown]
  - Neutropenia [Unknown]
  - Hair disorder [Unknown]
  - Headache [Unknown]
  - Fatigue [Unknown]
  - Cognitive disorder [Unknown]
  - Nausea [Not Recovered/Not Resolved]
  - Musculoskeletal disorder [Unknown]
  - Asthenia [Unknown]
  - Loss of personal independence in daily activities [Unknown]
  - Product packaging difficult to open [Unknown]
  - Memory impairment [Unknown]
  - Alopecia [Unknown]

NARRATIVE: CASE EVENT DATE: 201804
